FAERS Safety Report 5287140-2 (Version None)
Quarter: 2007Q2

REPORT INFORMATION
  Report Type: 
  Country: None (occurrence: None)
  Receive Date: 20070404
  Receipt Date: 20070323
  Transmission Date: 20071010
  Serious: Yes (Life-Threatening, Other)
  Sender: FDA-Public Use
  Company Number: JP-PFIZER INC-2007018303

PATIENT
  Sex: Male
  Weight: 47.7 kg

DRUGS (8)
  1. SULPERAZON [Suspect]
     Indication: PNEUMONIA
     Route: 042
     Dates: start: 20061212, end: 20061213
  2. SULPERAZON [Suspect]
     Route: 042
     Dates: start: 20070131, end: 20070203
  3. SULPERAZON [Suspect]
     Route: 042
     Dates: start: 20070227, end: 20070227
  4. LAC B [Concomitant]
  5. PROMAC /JPN/ [Concomitant]
  6. GASTER [Concomitant]
  7. SODIUM CHLORIDE [Concomitant]
  8. FERROMIA [Concomitant]

REACTIONS (2)
  - BLOOD PRESSURE DECREASED [None]
  - ERYTHEMA [None]
